FAERS Safety Report 9391156 (Version 1)
Quarter: 2013Q3

REPORT INFORMATION
  Report Type: Spontaneous
  Country: US (occurrence: None)
  Receive Date: 20130705
  Receipt Date: 20130705
  Transmission Date: 20140515
  Serious: Yes (Other)
  Sender: FDA-Public Use
  Company Number: None

PATIENT
  Sex: Female

DRUGS (1)
  1. TECFIDERA [Suspect]
     Indication: MULTIPLE SCLEROSIS
     Dosage: 240MG BID ORAL
     Route: 048
     Dates: start: 20130616, end: 20130702

REACTIONS (8)
  - Flushing [None]
  - Dyspepsia [None]
  - Abdominal distension [None]
  - Diarrhoea [None]
  - Decreased appetite [None]
  - Weight decreased [None]
  - Fatigue [None]
  - Blood pressure decreased [None]
